FAERS Safety Report 9016122 (Version 1)
Quarter: 2013Q1

REPORT INFORMATION
  Report Type: Report from Study
  Country: US (occurrence: US)
  Receive Date: 20130116
  Receipt Date: 20130116
  Transmission Date: 20140127
  Serious: Yes (Hospitalization)
  Sender: FDA-Public Use
  Company Number: US-DX529-2013DX000003

PATIENT
  Age: 55 Year
  Sex: Female
  Weight: 75.75 kg

DRUGS (9)
  1. KALBITOR [Suspect]
     Indication: HEREDITARY ANGIOEDEMA
     Route: 058
     Dates: start: 20121014, end: 20121014
  2. CINRYZE [Concomitant]
     Indication: HEREDITARY ANGIOEDEMA
     Dates: end: 201210
  3. STANOZOL [Concomitant]
     Indication: HEREDITARY ANGIOEDEMA
     Route: 048
     Dates: start: 201111
  4. OXYCONTIN [Concomitant]
     Indication: FIBROMYALGIA
     Route: 048
  5. SIMVASTIN [Concomitant]
     Indication: PRODUCT USED FOR UNKNOWN INDICATION
     Route: 048
  6. HYDROCHLOROTHIAZIDE [Concomitant]
     Indication: DIURETIC THERAPY
     Route: 048
  7. METOPROLOL [Concomitant]
     Indication: HYPERTENSION
     Route: 048
  8. AMBIEN [Concomitant]
     Indication: INSOMNIA
     Route: 048
  9. HYOSCYAMINE [Concomitant]
     Indication: NAUSEA
     Route: 048

REACTIONS (4)
  - Dehydration [Unknown]
  - Dizziness [Unknown]
  - Asthenia [Unknown]
  - Therapeutic response decreased [Unknown]
